FAERS Safety Report 10040700 (Version 1)
Quarter: 2014Q1

REPORT INFORMATION
  Report Type: Spontaneous
  Country: US (occurrence: US)
  Receive Date: 20140327
  Receipt Date: 20140327
  Transmission Date: 20141002
  Serious: Yes (Hospitalization)
  Sender: FDA-Public Use
  Company Number: US-ASTRAZENECA-2014SE19681

PATIENT
  Age: 57 Year
  Sex: Male

DRUGS (2)
  1. BRILINTA [Suspect]
     Indication: ANGINA UNSTABLE
     Route: 048
     Dates: start: 20140318
  2. ANGIOMAX [Concomitant]

REACTIONS (1)
  - Cerebral haemorrhage [Unknown]
